FAERS Safety Report 4398045-3 (Version None)
Quarter: 2004Q3

REPORT INFORMATION
  Report Type: 
  Country: None (occurrence: None)
  Receive Date: 20040715
  Receipt Date: 20040630
  Transmission Date: 20050211
  Serious: Yes (Other)
  Sender: FDA-Public Use
  Company Number: PHBS2004JP08729

PATIENT
  Age: 19 Year
  Sex: Male

DRUGS (7)
  1. CYCLOSPORINE [Suspect]
     Indication: STEM CELL TRANSPLANT
     Route: 065
     Dates: start: 20040101
  2. CYCLOSPORINE [Suspect]
     Dosage: UNK, UNK
  3. METHOTREXATE [Suspect]
     Indication: STEM CELL TRANSPLANT
     Route: 065
     Dates: start: 20040101
  4. CYCLOPHOSPHAMIDE [Suspect]
     Indication: STEM CELL TRANSPLANT
     Dosage: 120 MG/KG/D
     Route: 065
  5. IRRADIATION [Suspect]
     Indication: STEM CELL TRANSPLANT
     Dosage: 12 GY
     Route: 065
  6. PREDONINE [Concomitant]
     Route: 048
  7. METHYLPREDNISOLONE [Concomitant]

REACTIONS (6)
  - CYSTITIS HAEMORRHAGIC [None]
  - CYTOMEGALOVIRUS ANTIGEN POSITIVE [None]
  - PLATELET FUNCTION TEST ABNORMAL [None]
  - RASH PAPULAR [None]
  - SEPSIS [None]
  - SKIN OEDEMA [None]
